FAERS Safety Report 10444849 (Version 1)
Quarter: 2014Q3

REPORT INFORMATION
  Report Type: Spontaneous
  Country: US (occurrence: US)
  Receive Date: 20140910
  Receipt Date: 20140910
  Transmission Date: 20150326
  Serious: Yes (Other)
  Sender: FDA-Public Use
  Company Number: US-ELI_LILLY_AND_COMPANY-US201409001612

PATIENT
  Sex: Female

DRUGS (1)
  1. FORTEO [Suspect]
     Active Substance: TERIPARATIDE
     Indication: HIP FRACTURE
     Dosage: UNK, UNKNOWN
     Route: 065
     Dates: start: 201303

REACTIONS (2)
  - Off label use [Unknown]
  - Hip fracture [Unknown]

NARRATIVE: CASE EVENT DATE: 201303
